FAERS Safety Report 19799743 (Version 18)
Quarter: 2025Q1

REPORT INFORMATION
  Report Type: Report from Study
  Country: CA (occurrence: CA)
  Receive Date: 20210907
  Receipt Date: 20250211
  Transmission Date: 20250409
  Serious: Yes (Death, Other)
  Sender: NOVARTIS
  Company Number: PHHY2016CA107522

PATIENT
  Age: 53 Year
  Sex: Female
  Weight: 53 kg

DRUGS (149)
  1. XOLAIR [Suspect]
     Active Substance: OMALIZUMAB
     Indication: Chronic spontaneous urticaria
     Dosage: 150 MG, TIW
     Route: 058
     Dates: start: 20160531
  2. XOLAIR [Suspect]
     Active Substance: OMALIZUMAB
     Route: 058
     Dates: start: 20160628
  3. XOLAIR [Suspect]
     Active Substance: OMALIZUMAB
     Route: 058
     Dates: start: 20160906
  4. XOLAIR [Suspect]
     Active Substance: OMALIZUMAB
     Route: 058
     Dates: start: 20161025
  5. XOLAIR [Suspect]
     Active Substance: OMALIZUMAB
     Route: 058
     Dates: start: 20161130
  6. XOLAIR [Suspect]
     Active Substance: OMALIZUMAB
     Route: 058
     Dates: start: 20161228
  7. XOLAIR [Suspect]
     Active Substance: OMALIZUMAB
     Route: 058
     Dates: start: 20170118
  8. XOLAIR [Suspect]
     Active Substance: OMALIZUMAB
     Dosage: 150 MG, TIW
     Route: 058
     Dates: start: 20170227
  9. XOLAIR [Suspect]
     Active Substance: OMALIZUMAB
     Route: 058
     Dates: start: 20170816
  10. XOLAIR [Suspect]
     Active Substance: OMALIZUMAB
     Route: 058
     Dates: start: 20170920
  11. XOLAIR [Suspect]
     Active Substance: OMALIZUMAB
     Route: 058
     Dates: start: 20171213
  12. XOLAIR [Suspect]
     Active Substance: OMALIZUMAB
     Route: 058
     Dates: start: 20180110
  13. XOLAIR [Suspect]
     Active Substance: OMALIZUMAB
     Dosage: 150 MG, TIW
     Route: 058
     Dates: start: 20200123
  14. XOLAIR [Suspect]
     Active Substance: OMALIZUMAB
     Dosage: 150 MG, TIW
     Route: 058
  15. XOLAIR [Suspect]
     Active Substance: OMALIZUMAB
     Dosage: 150 MG, TIW
     Route: 058
  16. XOLAIR [Suspect]
     Active Substance: OMALIZUMAB
     Dosage: 150 MG, TIW
     Route: 058
  17. XOLAIR [Suspect]
     Active Substance: OMALIZUMAB
     Dosage: 150 MG, TIW
     Route: 058
  18. XOLAIR [Suspect]
     Active Substance: OMALIZUMAB
     Dosage: 150 MG, TIW
     Route: 058
  19. XOLAIR [Suspect]
     Active Substance: OMALIZUMAB
     Dosage: 300 MG, TIW
     Route: 065
  20. XOLAIR [Suspect]
     Active Substance: OMALIZUMAB
     Route: 058
  21. XOLAIR [Suspect]
     Active Substance: OMALIZUMAB
     Indication: Chronic spontaneous urticaria
     Route: 058
  22. XOLAIR [Suspect]
     Active Substance: OMALIZUMAB
     Route: 058
  23. XOLAIR [Suspect]
     Active Substance: OMALIZUMAB
     Route: 058
  24. XOLAIR [Suspect]
     Active Substance: OMALIZUMAB
     Route: 058
  25. XOLAIR [Suspect]
     Active Substance: OMALIZUMAB
     Dosage: 150 MG, TIW
     Route: 058
  26. XOLAIR [Suspect]
     Active Substance: OMALIZUMAB
     Route: 058
  27. XOLAIR [Suspect]
     Active Substance: OMALIZUMAB
     Route: 058
  28. XOLAIR [Suspect]
     Active Substance: OMALIZUMAB
     Route: 058
  29. XOLAIR [Suspect]
     Active Substance: OMALIZUMAB
     Dosage: 150 MG, TIW
     Route: 058
  30. XOLAIR [Suspect]
     Active Substance: OMALIZUMAB
     Dosage: 150 MG, TIW
     Route: 058
  31. XOLAIR [Suspect]
     Active Substance: OMALIZUMAB
     Dosage: 150 MG, TIW
     Route: 058
  32. XOLAIR [Suspect]
     Active Substance: OMALIZUMAB
     Route: 058
  33. XOLAIR [Suspect]
     Active Substance: OMALIZUMAB
     Dosage: 150 MG, TIW
     Route: 058
  34. XOLAIR [Suspect]
     Active Substance: OMALIZUMAB
     Dosage: 300 MG, TIW
     Route: 065
  35. XOLAIR [Suspect]
     Active Substance: OMALIZUMAB
     Route: 058
  36. XOLAIR [Suspect]
     Active Substance: OMALIZUMAB
     Dosage: 150 MG, TIW
     Route: 058
  37. XOLAIR [Suspect]
     Active Substance: OMALIZUMAB
     Dosage: 150 MG, TIW
     Route: 058
  38. XOLAIR [Suspect]
     Active Substance: OMALIZUMAB
     Route: 065
  39. XOLAIR [Suspect]
     Active Substance: OMALIZUMAB
     Dosage: 300 MG, TIW
     Route: 058
  40. XOLAIR [Suspect]
     Active Substance: OMALIZUMAB
     Dosage: 150 MG, TIW
     Route: 058
  41. XOLAIR [Suspect]
     Active Substance: OMALIZUMAB
     Dosage: 150 MG, TIW
     Route: 058
  42. XOLAIR [Suspect]
     Active Substance: OMALIZUMAB
     Dosage: 150 MG, TIW
     Route: 058
  43. XOLAIR [Suspect]
     Active Substance: OMALIZUMAB
     Dosage: 150 MG, TIW
     Route: 058
  44. XOLAIR [Suspect]
     Active Substance: OMALIZUMAB
     Dosage: 150 MG, TIW
     Route: 058
  45. XOLAIR [Suspect]
     Active Substance: OMALIZUMAB
     Dosage: 150 MG, TIW
     Route: 058
  46. XOLAIR [Suspect]
     Active Substance: OMALIZUMAB
     Dosage: 150 MG, TIW
     Route: 058
  47. XOLAIR [Suspect]
     Active Substance: OMALIZUMAB
     Route: 058
  48. XOLAIR [Suspect]
     Active Substance: OMALIZUMAB
     Dosage: 150 MG, TIW
     Route: 058
  49. XOLAIR [Suspect]
     Active Substance: OMALIZUMAB
     Dosage: 150 MG, QD
     Route: 058
  50. XOLAIR [Suspect]
     Active Substance: OMALIZUMAB
     Route: 058
  51. XOLAIR [Suspect]
     Active Substance: OMALIZUMAB
     Route: 058
  52. XOLAIR [Suspect]
     Active Substance: OMALIZUMAB
     Route: 058
  53. XOLAIR [Suspect]
     Active Substance: OMALIZUMAB
     Route: 058
  54. XOLAIR [Suspect]
     Active Substance: OMALIZUMAB
     Route: 058
  55. XOLAIR [Suspect]
     Active Substance: OMALIZUMAB
     Route: 058
  56. XOLAIR [Suspect]
     Active Substance: OMALIZUMAB
     Route: 058
  57. XOLAIR [Suspect]
     Active Substance: OMALIZUMAB
     Route: 058
  58. XOLAIR [Suspect]
     Active Substance: OMALIZUMAB
     Route: 058
  59. XOLAIR [Suspect]
     Active Substance: OMALIZUMAB
     Route: 058
  60. XOLAIR [Suspect]
     Active Substance: OMALIZUMAB
     Route: 058
  61. XOLAIR [Suspect]
     Active Substance: OMALIZUMAB
     Route: 058
  62. XOLAIR [Suspect]
     Active Substance: OMALIZUMAB
     Route: 058
  63. XOLAIR [Suspect]
     Active Substance: OMALIZUMAB
     Route: 058
  64. XOLAIR [Suspect]
     Active Substance: OMALIZUMAB
     Route: 058
  65. XOLAIR [Suspect]
     Active Substance: OMALIZUMAB
     Route: 058
  66. XOLAIR [Suspect]
     Active Substance: OMALIZUMAB
     Route: 058
  67. XOLAIR [Suspect]
     Active Substance: OMALIZUMAB
     Indication: Chronic spontaneous urticaria
     Route: 058
  68. XOLAIR [Suspect]
     Active Substance: OMALIZUMAB
     Route: 058
  69. XOLAIR [Suspect]
     Active Substance: OMALIZUMAB
     Route: 058
  70. XOLAIR [Suspect]
     Active Substance: OMALIZUMAB
     Route: 058
  71. XOLAIR [Suspect]
     Active Substance: OMALIZUMAB
     Route: 058
  72. XOLAIR [Suspect]
     Active Substance: OMALIZUMAB
     Route: 058
  73. XOLAIR [Suspect]
     Active Substance: OMALIZUMAB
     Route: 058
  74. XOLAIR [Suspect]
     Active Substance: OMALIZUMAB
     Route: 058
  75. XOLAIR [Suspect]
     Active Substance: OMALIZUMAB
     Route: 058
  76. XOLAIR [Suspect]
     Active Substance: OMALIZUMAB
     Route: 058
  77. XOLAIR [Suspect]
     Active Substance: OMALIZUMAB
     Route: 058
  78. XOLAIR [Suspect]
     Active Substance: OMALIZUMAB
     Route: 058
  79. XOLAIR [Suspect]
     Active Substance: OMALIZUMAB
     Route: 058
  80. XOLAIR [Suspect]
     Active Substance: OMALIZUMAB
     Route: 058
  81. XOLAIR [Suspect]
     Active Substance: OMALIZUMAB
     Route: 058
  82. XOLAIR [Suspect]
     Active Substance: OMALIZUMAB
     Route: 058
  83. XOLAIR [Suspect]
     Active Substance: OMALIZUMAB
     Route: 058
  84. XOLAIR [Suspect]
     Active Substance: OMALIZUMAB
     Route: 058
  85. XOLAIR [Suspect]
     Active Substance: OMALIZUMAB
     Route: 058
  86. XOLAIR [Suspect]
     Active Substance: OMALIZUMAB
     Route: 058
  87. XOLAIR [Suspect]
     Active Substance: OMALIZUMAB
     Route: 058
  88. XOLAIR [Suspect]
     Active Substance: OMALIZUMAB
     Route: 058
  89. XOLAIR [Suspect]
     Active Substance: OMALIZUMAB
     Route: 058
  90. XOLAIR [Suspect]
     Active Substance: OMALIZUMAB
     Route: 058
  91. XOLAIR [Suspect]
     Active Substance: OMALIZUMAB
     Indication: Chronic spontaneous urticaria
     Route: 058
  92. XOLAIR [Suspect]
     Active Substance: OMALIZUMAB
     Route: 058
  93. XOLAIR [Suspect]
     Active Substance: OMALIZUMAB
     Route: 058
  94. XOLAIR [Suspect]
     Active Substance: OMALIZUMAB
     Route: 058
  95. XOLAIR [Suspect]
     Active Substance: OMALIZUMAB
     Route: 058
  96. XOLAIR [Suspect]
     Active Substance: OMALIZUMAB
     Route: 058
  97. XOLAIR [Suspect]
     Active Substance: OMALIZUMAB
     Route: 058
  98. XOLAIR [Suspect]
     Active Substance: OMALIZUMAB
     Route: 058
  99. XOLAIR [Suspect]
     Active Substance: OMALIZUMAB
     Route: 058
  100. XOLAIR [Suspect]
     Active Substance: OMALIZUMAB
     Route: 058
  101. XOLAIR [Suspect]
     Active Substance: OMALIZUMAB
     Route: 058
  102. XOLAIR [Suspect]
     Active Substance: OMALIZUMAB
     Route: 058
  103. XOLAIR [Suspect]
     Active Substance: OMALIZUMAB
     Route: 058
  104. XOLAIR [Suspect]
     Active Substance: OMALIZUMAB
     Route: 058
  105. XOLAIR [Suspect]
     Active Substance: OMALIZUMAB
     Route: 058
  106. XOLAIR [Suspect]
     Active Substance: OMALIZUMAB
     Route: 058
  107. XOLAIR [Suspect]
     Active Substance: OMALIZUMAB
     Route: 058
  108. XOLAIR [Suspect]
     Active Substance: OMALIZUMAB
     Route: 058
  109. XOLAIR [Suspect]
     Active Substance: OMALIZUMAB
     Route: 058
  110. XOLAIR [Suspect]
     Active Substance: OMALIZUMAB
     Route: 058
  111. XOLAIR [Suspect]
     Active Substance: OMALIZUMAB
     Route: 058
  112. XOLAIR [Suspect]
     Active Substance: OMALIZUMAB
     Route: 058
  113. XOLAIR [Suspect]
     Active Substance: OMALIZUMAB
     Route: 058
  114. XOLAIR [Suspect]
     Active Substance: OMALIZUMAB
     Route: 058
  115. XOLAIR [Suspect]
     Active Substance: OMALIZUMAB
     Route: 058
  116. XOLAIR [Suspect]
     Active Substance: OMALIZUMAB
     Route: 058
  117. XOLAIR [Suspect]
     Active Substance: OMALIZUMAB
     Route: 058
  118. XOLAIR [Suspect]
     Active Substance: OMALIZUMAB
     Route: 058
  119. XOLAIR [Suspect]
     Active Substance: OMALIZUMAB
     Route: 058
  120. XOLAIR [Suspect]
     Active Substance: OMALIZUMAB
     Route: 058
  121. XOLAIR [Suspect]
     Active Substance: OMALIZUMAB
     Route: 058
  122. XOLAIR [Suspect]
     Active Substance: OMALIZUMAB
     Route: 058
  123. XOLAIR [Suspect]
     Active Substance: OMALIZUMAB
     Route: 058
  124. XOLAIR [Suspect]
     Active Substance: OMALIZUMAB
     Route: 058
  125. XOLAIR [Suspect]
     Active Substance: OMALIZUMAB
     Route: 058
  126. XOLAIR [Suspect]
     Active Substance: OMALIZUMAB
     Route: 058
  127. XOLAIR [Suspect]
     Active Substance: OMALIZUMAB
     Route: 058
  128. XOLAIR [Suspect]
     Active Substance: OMALIZUMAB
     Route: 058
  129. XOLAIR [Suspect]
     Active Substance: OMALIZUMAB
     Route: 058
  130. XOLAIR [Suspect]
     Active Substance: OMALIZUMAB
     Route: 058
  131. XOLAIR [Suspect]
     Active Substance: OMALIZUMAB
     Dosage: 300 MG1 EVERY 3 WEEKS
     Route: 058
  132. XOLAIR [Suspect]
     Active Substance: OMALIZUMAB
     Dosage: 150 MG, 1 EVERY 3 WEEKS
     Route: 058
  133. XOLAIR [Suspect]
     Active Substance: OMALIZUMAB
     Route: 058
  134. XOLAIR [Suspect]
     Active Substance: OMALIZUMAB
     Route: 058
  135. XOLAIR [Suspect]
     Active Substance: OMALIZUMAB
     Route: 058
  136. XOLAIR [Suspect]
     Active Substance: OMALIZUMAB
     Route: 058
  137. XOLAIR [Suspect]
     Active Substance: OMALIZUMAB
     Route: 058
  138. XOLAIR [Suspect]
     Active Substance: OMALIZUMAB
     Route: 058
  139. XOLAIR [Suspect]
     Active Substance: OMALIZUMAB
     Route: 058
  140. BACLOFEN [Suspect]
     Active Substance: BACLOFEN
     Indication: Product used for unknown indication
     Route: 065
  141. CITALOPRAM [Suspect]
     Active Substance: CITALOPRAM
     Indication: Product used for unknown indication
     Route: 065
  142. VANCOMYCIN HYDROCHLORIDE [Suspect]
     Active Substance: VANCOMYCIN HYDROCHLORIDE
     Indication: Product used for unknown indication
     Route: 042
  143. CARBAMAZEPINE [Suspect]
     Active Substance: CARBAMAZEPINE
     Indication: Product used for unknown indication
     Route: 065
  144. CLARITHROMYCIN [Suspect]
     Active Substance: CLARITHROMYCIN
     Indication: Product used for unknown indication
     Route: 065
  145. CODEINE PHOSPHATE [Suspect]
     Active Substance: CODEINE PHOSPHATE
     Indication: Product used for unknown indication
     Route: 065
  146. CLONAZEPAM [Suspect]
     Active Substance: CLONAZEPAM
     Indication: Product used for unknown indication
     Route: 048
  147. Reactine [Concomitant]
     Indication: Product used for unknown indication
     Route: 065
  148. BENADRYL [Concomitant]
     Active Substance: DIPHENHYDRAMINE HYDROCHLORIDE
     Indication: Product used for unknown indication
     Route: 065
  149. PREDNISONE [Concomitant]
     Active Substance: PREDNISONE
     Indication: Product used for unknown indication
     Route: 065

REACTIONS (30)
  - Back pain [Fatal]
  - Cough [Fatal]
  - Diarrhoea [Fatal]
  - Drug hypersensitivity [Fatal]
  - Dry eye [Fatal]
  - Ear infection [Fatal]
  - Fatigue [Fatal]
  - Heart rate increased [Fatal]
  - Hypoacusis [Fatal]
  - Illness [Fatal]
  - Influenza [Fatal]
  - Lower respiratory tract infection [Fatal]
  - Migraine [Fatal]
  - Nasal congestion [Fatal]
  - Nasopharyngitis [Fatal]
  - Oral herpes [Fatal]
  - Oropharyngeal pain [Fatal]
  - Pyrexia [Fatal]
  - Respiratory tract congestion [Fatal]
  - Weight decreased [Fatal]
  - Urticaria [Fatal]
  - Rhinorrhoea [Fatal]
  - Weight increased [Fatal]
  - Sunburn [Fatal]
  - Contusion [Fatal]
  - Injection site bruising [Recovered/Resolved]
  - Incorrect dose administered [Fatal]
  - Inappropriate schedule of product administration [Fatal]
  - Lower respiratory tract infection [Fatal]
  - Oropharyngeal pain [Fatal]

NARRATIVE: CASE EVENT DATE: 20160802
